FAERS Safety Report 25072892 (Version 1)
Quarter: 2025Q1

REPORT INFORMATION
  Report Type: Report from Study
  Country: CO (occurrence: CO)
  Receive Date: 20250313
  Receipt Date: 20250313
  Transmission Date: 20250408
  Serious: Yes (Death)
  Sender: ABBVIE
  Company Number: CO-JNJFOC-20250319219

PATIENT
  Age: 76 Year
  Sex: Female
  Weight: 60 kg

DRUGS (1)
  1. IMBRUVICA [Suspect]
     Active Substance: IBRUTINIB
     Indication: Chronic lymphocytic leukaemia
     Dosage: LAST IMBRUVICA INTAKE:20-NOV-2024
     Route: 048
     Dates: start: 20240727, end: 20241120

REACTIONS (1)
  - Death [Fatal]

NARRATIVE: CASE EVENT DATE: 20241120
